FAERS Safety Report 7812373-8 (Version None)
Quarter: 2011Q4

REPORT INFORMATION
  Report Type: 
  Country: None (occurrence: None)
  Receive Date: 20111013
  Receipt Date: 20111006
  Transmission Date: 20120403
  Serious: Yes (Hospitalization)
  Sender: FDA-Public Use
  Company Number: JP-GLAXOSMITHKLINE-B0754246A

PATIENT
  Sex: Male
  Weight: 70 kg

DRUGS (3)
  1. MUCODYNE [Concomitant]
     Indication: BRONCHITIS CHRONIC
     Dosage: 1.5G PER DAY
     Route: 048
     Dates: end: 20100401
  2. THEO-DUR [Concomitant]
     Indication: BRONCHITIS CHRONIC
     Dosage: 200MG PER DAY
     Route: 048
  3. FLUTICASONE PROPIONATE/SALMETEROL [Suspect]
     Indication: BRONCHITIS CHRONIC
     Dosage: 500MCG PER DAY
     Route: 055
     Dates: start: 20091208

REACTIONS (1)
  - ACUTE MYOCARDIAL INFARCTION [None]
